FAERS Safety Report 16062206 (Version 1)
Quarter: 2019Q1

REPORT INFORMATION
  Report Type: Spontaneous
  Country: US (occurrence: US)
  Receive Date: 20190312
  Receipt Date: 20190312
  Transmission Date: 20190418
  Serious: No
  Sender: FDA-Public Use
  Company Number: US-BAYER-2019-049734

PATIENT
  Age: 92 Year
  Sex: Male
  Weight: 66 kg

DRUGS (1)
  1. MIRALAX [Suspect]
     Active Substance: POLYETHYLENE GLYCOL 3350
     Indication: GASTROINTESTINAL DISORDER
     Dosage: 1 DF
     Route: 048
     Dates: start: 201902

REACTIONS (5)
  - Product taste abnormal [Unknown]
  - Abnormal faeces [None]
  - Product solubility abnormal [Unknown]
  - Poor quality product administered [None]
  - Drug effect incomplete [Unknown]

NARRATIVE: CASE EVENT DATE: 2019
